FAERS Safety Report 25328238 (Version 1)
Quarter: 2025Q2

REPORT INFORMATION
  Report Type: Spontaneous
  Country: CN (occurrence: CN)
  Receive Date: 20250518
  Receipt Date: 20250518
  Transmission Date: 20250716
  Serious: Yes (Hospitalization, Other)
  Sender: ABBVIE
  Company Number: CN-ABBVIE-6279585

PATIENT
  Age: 52 Year
  Sex: Male
  Weight: 65 kg

DRUGS (2)
  1. LOPINAVIR\RITONAVIR [Suspect]
     Active Substance: LOPINAVIR\RITONAVIR
     Indication: Acquired immunodeficiency syndrome
     Dosage: 4 TABLET
     Route: 048
     Dates: start: 20250225, end: 20250429
  2. LAMIVUDINE [Suspect]
     Active Substance: LAMIVUDINE
     Indication: Acquired immunodeficiency syndrome
     Route: 065
     Dates: start: 20250225

REACTIONS (6)
  - Pancreatitis acute [Unknown]
  - Pancreatic failure [Recovering/Resolving]
  - Amylase increased [Recovered/Resolved]
  - Pancreatitis chronic [Unknown]
  - Mumps [Unknown]
  - Biliary tract disorder [Unknown]

NARRATIVE: CASE EVENT DATE: 20250101
